FAERS Safety Report 21493122 (Version 1)
Quarter: 2022Q4

REPORT INFORMATION
  Report Type: Spontaneous
  Country: BR (occurrence: None)
  Receive Date: 20221021
  Receipt Date: 20221021
  Transmission Date: 20230112
  Serious: Yes (Disabling)
  Sender: FDA-Public Use
  Company Number: BR-ROCHE-3204310

PATIENT
  Age: 78 Year
  Sex: Male
  Weight: 95 kg

DRUGS (3)
  1. RIVOTRIL [Suspect]
     Active Substance: CLONAZEPAM
     Indication: Panic disorder
     Route: 048
  2. RIVOTRIL [Suspect]
     Active Substance: CLONAZEPAM
     Dosage: PATIENT EXPLAINED THAT AT THE BEGINNING OF TREATMENT HE USED TO TAKE 2 PILLS
     Route: 048
     Dates: start: 1997
  3. TEGRETOL [Suspect]
     Active Substance: CARBAMAZEPINE
     Indication: Panic disorder
     Route: 048
     Dates: start: 1997

REACTIONS (10)
  - Gait inability [Recovered/Resolved]
  - Asthenia [Recovered/Resolved]
  - Hypoaesthesia [Recovered/Resolved]
  - Ocular hyperaemia [Not Recovered/Not Resolved]
  - Crying [Not Recovered/Not Resolved]
  - Musculoskeletal stiffness [Not Recovered/Not Resolved]
  - Hypertension [Recovered/Resolved]
  - Weight increased [Recovered/Resolved]
  - Tremor [Recovered/Resolved]
  - Visual impairment [Unknown]

NARRATIVE: CASE EVENT DATE: 20200101
